FAERS Safety Report 21779981 (Version 2)
Quarter: 2022Q4

REPORT INFORMATION
  Report Type: Other
  Country: US (occurrence: None)
  Receive Date: 20221226
  Receipt Date: 20221229
  Transmission Date: 20230113
  Serious: No
  Sender: FDA-Public Use
  Company Number: US-ROCHE-3250833

PATIENT
  Age: 64 Year
  Sex: Female

DRUGS (3)
  1. OCREVUS [Suspect]
     Active Substance: OCRELIZUMAB
     Indication: Primary progressive multiple sclerosis
     Route: 065
     Dates: start: 20210609
  2. OCREVUS [Suspect]
     Active Substance: OCRELIZUMAB
     Indication: Primary progressive multiple sclerosis
     Dosage: 300 MG IV ON DAY ONE AND 300 MG IV ON DAY 15
     Route: 042
  3. OCREVUS [Suspect]
     Active Substance: OCRELIZUMAB
     Route: 042

REACTIONS (4)
  - COVID-19 [Recovered/Resolved]
  - Fatigue [Recovered/Resolved]
  - Irritable bowel syndrome [Not Recovered/Not Resolved]
  - B-lymphocyte count decreased [Unknown]

NARRATIVE: CASE EVENT DATE: 20220901
